FAERS Safety Report 10082347 (Version 1)
Quarter: 2014Q2

REPORT INFORMATION
  Report Type: Spontaneous
  Country: US (occurrence: US)
  Receive Date: 20140416
  Receipt Date: 20140416
  Transmission Date: 20141212
  Serious: Yes (Other)
  Sender: FDA-Public Use
  Company Number: US-ABBVIE-14P-163-1225273-00

PATIENT
  Sex: Female
  Weight: 61.29 kg

DRUGS (9)
  1. SYNTHROID [Suspect]
     Indication: HYPOPITUITARISM
     Route: 048
  2. SYNTHROID [Suspect]
     Indication: HYPOPITUITARISM
     Route: 048
  3. ALBUTEROL [Concomitant]
     Indication: ASTHMA
  4. HUMALOG [Concomitant]
     Indication: DIABETES MELLITUS
  5. EVISTA [Concomitant]
     Indication: OSTEOPOROSIS
  6. LANTUS [Concomitant]
     Indication: DIABETES MELLITUS
  7. UNKNOWN HIGH BLOOD PRESSURE MEDICATION [Concomitant]
     Indication: HYPERTENSION
  8. POTASSIUM CHLORIDE [Concomitant]
     Indication: MINERAL SUPPLEMENTATION
  9. PREDNISONE [Concomitant]
     Indication: HYPOPITUITARISM

REACTIONS (4)
  - Cataract [Recovered/Resolved]
  - Pain [Recovering/Resolving]
  - Insomnia [Not Recovered/Not Resolved]
  - Headache [Not Recovered/Not Resolved]
